FAERS Safety Report 16158445 (Version 1)
Quarter: 2019Q2

REPORT INFORMATION
  Report Type: Spontaneous
  Country: US (occurrence: US)
  Receive Date: 20190404
  Receipt Date: 20190404
  Transmission Date: 20190711
  Serious: No
  Sender: FDA-Public Use
  Company Number: US-JNJFOC-20190315796

PATIENT
  Sex: Male
  Weight: 67.13 kg

DRUGS (2)
  1. CHILDRENS MOTRIN [Suspect]
     Active Substance: IBUPROFEN
     Indication: HYPOAESTHESIA
     Dosage: SAMPLES IT ABOUT 2-3 TIMES A MONTH
     Route: 048
  2. CHILDRENS MOTRIN [Suspect]
     Active Substance: IBUPROFEN
     Route: 048

REACTIONS (3)
  - Product use in unapproved indication [Unknown]
  - Paraesthesia [Recovered/Resolved]
  - Product administered to patient of inappropriate age [Unknown]
